FAERS Safety Report 9779007 (Version 2)
Quarter: 2014Q1

REPORT INFORMATION
  Report Type: Spontaneous
  Country: US (occurrence: US)
  Receive Date: 20131223
  Receipt Date: 20140227
  Transmission Date: 20141002
  Serious: No
  Sender: FDA-Public Use
  Company Number: US-TEVA-449240USA

PATIENT
  Age: 22 Year
  Sex: Female
  Weight: 56.3 kg

DRUGS (1)
  1. PARAGARD 380A [Suspect]
     Indication: CONTRACEPTION
     Dates: start: 20130930, end: 20131204

REACTIONS (2)
  - Abdominal pain [Recovered/Resolved with Sequelae]
  - Device expulsion [Recovered/Resolved with Sequelae]
